FAERS Safety Report 6282494-2 (Version None)
Quarter: 2009Q3

REPORT INFORMATION
  Report Type: 
  Country: None (occurrence: None)
  Receive Date: 20090721
  Receipt Date: 20090721
  Transmission Date: 20100115
  Serious: Yes (Life-Threatening)
  Sender: FDA-Public Use
  Company Number: None

PATIENT
  Age: 62 Year
  Sex: Female
  Weight: 77.1115 kg

DRUGS (1)
  1. BACTRIM DS [Suspect]
     Indication: LOCALISED INFECTION
     Dosage: 2 TABS BID PO
     Route: 048
     Dates: start: 20090706, end: 20090713

REACTIONS (7)
  - DIARRHOEA [None]
  - NAUSEA [None]
  - PETECHIAE [None]
  - PYREXIA [None]
  - RASH GENERALISED [None]
  - RASH PRURITIC [None]
  - SWELLING [None]
